FAERS Safety Report 16407205 (Version 2)
Quarter: 2019Q2

REPORT INFORMATION
  Report Type: Spontaneous
  Country: JP (occurrence: JP)
  Receive Date: 20190608
  Receipt Date: 20190617
  Transmission Date: 20190711
  Serious: Yes (Death)
  Sender: FDA-Public Use
  Company Number: JP-ROCHE-2332151

PATIENT
  Age: 80 Year

DRUGS (1)
  1. LUCENTIS [Suspect]
     Active Substance: RANIBIZUMAB
     Indication: DIABETIC RETINAL OEDEMA
     Route: 031
     Dates: start: 201604, end: 201905

REACTIONS (4)
  - Concomitant disease progression [Fatal]
  - Disease progression [Fatal]
  - Diabetic retinal oedema [Fatal]
  - Diabetic nephropathy [Fatal]
